FAERS Safety Report 7119957-3 (Version None)
Quarter: 2010Q4

REPORT INFORMATION
  Report Type: 
  Country: None (occurrence: None)
  Receive Date: 20101123
  Receipt Date: 20101118
  Transmission Date: 20110411
  Serious: Yes (Hospitalization)
  Sender: FDA-Public Use
  Company Number: CHPA2010US17512

PATIENT
  Age: 39 Year
  Sex: Female
  Weight: 90.703 kg

DRUGS (2)
  1. EXCEDRIN (MIGRAINE) [Suspect]
     Indication: HEADACHE
     Dosage: 2 CAPLETS TWICE PER DAY
     Route: 048
     Dates: start: 20101110, end: 20101110
  2. EXCEDRIN (MIGRAINE) [Suspect]
     Dosage: 2 CAPLETS ONCE
     Route: 048
     Dates: start: 20101109, end: 20101109

REACTIONS (2)
  - DIZZINESS [None]
  - PARAESTHESIA [None]
